FAERS Safety Report 5868060-9 (Version None)
Quarter: 2008Q3

REPORT INFORMATION
  Report Type: 
  Country: None (occurrence: None)
  Receive Date: 20080902
  Receipt Date: 20080825
  Transmission Date: 20090109
  Serious: Yes (Hospitalization)
  Sender: FDA-Public Use
  Company Number: FR-ASTRAZENECA-2008CG01258

PATIENT
  Age: 75 Year
  Sex: Female

DRUGS (7)
  1. NEXIUM [Suspect]
     Route: 048
     Dates: end: 20071205
  2. RISPERDAL [Suspect]
     Route: 048
     Dates: end: 20071205
  3. VASTAREL [Suspect]
     Route: 048
     Dates: end: 20071205
  4. VALSARTAN [Suspect]
     Route: 048
     Dates: end: 20071205
  5. STRESAM [Concomitant]
     Route: 048
  6. ASPIRIN [Concomitant]
     Route: 048
  7. PROPRANOLOL [Concomitant]
     Route: 048

REACTIONS (2)
  - HYPOTENSION [None]
  - VERTIGO [None]
